FAERS Safety Report 8435849-1 (Version None)
Quarter: 2012Q2

REPORT INFORMATION
  Report Type: 
  Country: None (occurrence: None)
  Receive Date: 20120614
  Receipt Date: 20120606
  Transmission Date: 20120825
  Serious: No
  Sender: FDA-Public Use
  Company Number: US-B.I. PHARMACEUTICALS,INC./RIDGEFIELD-2012-BP-13155BP

PATIENT
  Age: 81 Year
  Sex: Female

DRUGS (13)
  1. NORVASC [Concomitant]
     Indication: HYPERTENSION
     Dosage: 5 MG
     Route: 048
     Dates: start: 20060101
  2. FISH OIL WITH D [Concomitant]
     Indication: SUPPLEMENTATION THERAPY
     Dosage: 1000 MG
     Route: 048
     Dates: start: 20090101
  3. PRADAXA [Suspect]
     Indication: ATRIAL FIBRILLATION
     Dosage: 300 MG
     Route: 048
     Dates: start: 20120505
  4. LOSARTAN POTASSIUM AND HYDROCHLOROTHIAZIDE [Concomitant]
     Indication: HYPERTENSION
     Route: 048
     Dates: start: 20060101
  5. VITAMIN D [Concomitant]
     Indication: SUPPLEMENTATION THERAPY
     Route: 048
     Dates: start: 20090101
  6. METFORMIN HCL [Concomitant]
     Indication: GLUCOSE TOLERANCE IMPAIRED
     Dosage: 500 MG
     Route: 048
     Dates: start: 20090101
  7. ASPIRIN [Concomitant]
     Indication: PROPHYLAXIS
     Dosage: 81 MG
     Route: 048
     Dates: start: 20070101
  8. CALTRATE WITH D [Concomitant]
     Indication: OSTEOPENIA
     Dosage: 1800 MG
     Route: 048
     Dates: start: 20010101
  9. CITALOPRAM [Concomitant]
     Indication: DEPRESSION
     Dosage: 10 MG
     Route: 048
     Dates: start: 19920101
  10. CLONAZEPAM [Concomitant]
     Indication: INSOMNIA
     Dosage: 0.5 MG
     Route: 048
     Dates: start: 20020101
  11. CENTRUM [Concomitant]
     Indication: SUPPLEMENTATION THERAPY
     Route: 048
     Dates: start: 20090101
  12. GINKGO BILOBA [Concomitant]
     Indication: AMNESIA
     Dosage: 240 MG
     Route: 048
     Dates: start: 20010101
  13. EQUATE ACID REDUCER [Concomitant]
     Indication: GASTROOESOPHAGEAL REFLUX DISEASE
     Dosage: 200 MG
     Route: 048
     Dates: start: 20020101

REACTIONS (2)
  - ABDOMINAL PAIN LOWER [None]
  - INSOMNIA [None]
